FAERS Safety Report 5396230-5 (Version None)
Quarter: 2007Q3

REPORT INFORMATION
  Report Type: 
  Country: None (occurrence: None)
  Receive Date: 20070718
  Receipt Date: 20070418
  Transmission Date: 20080115
  Serious: Yes (Hospitalization, Other)
  Sender: FDA-Public Use
  Company Number: 2006141158

PATIENT
  Age: 57 Year
  Sex: Male
  Weight: 99.8 kg

DRUGS (3)
  1. CELEBREX [Suspect]
     Indication: ARTHRALGIA
     Dosage: (1 D), ORAL
     Route: 048
     Dates: start: 19990401
  2. CELEBREX [Suspect]
     Indication: BACK PAIN
     Dosage: (1 D), ORAL
     Route: 048
     Dates: start: 19990401
  3. CELEBREX [Suspect]
     Indication: PAIN IN EXTREMITY
     Dosage: (1 D), ORAL
     Route: 048
     Dates: start: 19990401

REACTIONS (1)
  - CEREBROVASCULAR ACCIDENT [None]
